FAERS Safety Report 4678676-3 (Version None)
Quarter: 2005Q2

REPORT INFORMATION
  Report Type: 
  Country: None (occurrence: None)
  Receive Date: 20050527
  Receipt Date: 20050517
  Transmission Date: 20051028
  Serious: Yes (Other)
  Sender: FDA-Public Use
  Company Number: 2005076990

PATIENT
  Age: 12 Year
  Sex: Male

DRUGS (2)
  1. ZYRTEC [Suspect]
     Indication: SEASONAL ALLERGY
     Dosage: ORAL
     Route: 048
     Dates: start: 20040101
  2. NASONEX [Concomitant]

REACTIONS (4)
  - ABDOMINAL PAIN [None]
  - DISEASE RECURRENCE [None]
  - PELVI-URETERIC OBSTRUCTION [None]
  - RENAL DISORDER [None]
